FAERS Safety Report 17333519 (Version 1)
Quarter: 2020Q1

REPORT INFORMATION
  Report Type: Other
  Country: GB (occurrence: GB)
  Receive Date: 20200128
  Receipt Date: 20200128
  Transmission Date: 20200409
  Serious: Yes (Other)
  Sender: FDA-Public Use
  Company Number: GB-LUPIN PHARMACEUTICALS INC.-2020-00331

PATIENT
  Age: 25 Year
  Sex: Female

DRUGS (26)
  1. LAMOTRIGINE. [Concomitant]
     Active Substance: LAMOTRIGINE
     Dosage: 100 MILLIGRAM, BID
     Route: 065
  2. ZONISAMIDE. [Concomitant]
     Active Substance: ZONISAMIDE
     Indication: EPILEPSY
     Dosage: UNK
     Route: 065
  3. LAMOTRIGINE. [Concomitant]
     Active Substance: LAMOTRIGINE
     Dosage: 150 MILLIGRAM, BID
     Route: 065
     Dates: end: 201808
  4. LEVETIRACETAM. [Suspect]
     Active Substance: LEVETIRACETAM
     Dosage: UNK UNK, BID, 250MG AM AND 500MG PM, 2X/DAY (BID)
     Route: 065
     Dates: start: 2019
  5. BRIVIACT [Suspect]
     Active Substance: BRIVARACETAM
     Indication: EPILEPSY
     Dosage: 10 MILLIGRAM, BID
     Route: 065
     Dates: start: 201805
  6. BRIVIACT [Suspect]
     Active Substance: BRIVARACETAM
     Dosage: UNK UNK, BID, 75MG AM AND 100MG PM, 2X/DAY (BID)
     Route: 065
     Dates: start: 201811
  7. BRIVIACT [Suspect]
     Active Substance: BRIVARACETAM
     Dosage: 50 MILLIGRAM, 2X/DAY (BID)
     Route: 065
  8. LAMOTRIGINE. [Concomitant]
     Active Substance: LAMOTRIGINE
     Indication: EPILEPSY
     Dosage: 250 MILLIGRAM, BID
     Route: 065
     Dates: start: 201805
  9. LAMOTRIGINE. [Concomitant]
     Active Substance: LAMOTRIGINE
     Dosage: 150 MILLIGRAM, BID
     Route: 065
     Dates: start: 201811
  10. LEVETIRACETAM. [Suspect]
     Active Substance: LEVETIRACETAM
     Dosage: 250 MILLIGRAM, QD
     Route: 065
     Dates: start: 201805
  11. BRIVIACT [Suspect]
     Active Substance: BRIVARACETAM
     Dosage: 100 MILLIGRAM, BID
     Route: 065
     Dates: start: 201812
  12. BRIVIACT [Suspect]
     Active Substance: BRIVARACETAM
     Dosage: 30 MILLIGRAM, BID
     Route: 065
  13. LAMOTRIGINE. [Concomitant]
     Active Substance: LAMOTRIGINE
     Dosage: 150 MILLIGRAM, BID
     Route: 065
     Dates: start: 201902
  14. LEVETIRACETAM. [Suspect]
     Active Substance: LEVETIRACETAM
     Dosage: UNK UNK, BID, 250MG AM AND 500MG PM, 2X/DAY (BID)
     Route: 065
     Dates: start: 201808
  15. LAMOTRIGINE. [Concomitant]
     Active Substance: LAMOTRIGINE
     Dosage: 200 MILLIGRAM, BID
     Route: 065
     Dates: start: 201806
  16. LAMOTRIGINE. [Concomitant]
     Active Substance: LAMOTRIGINE
     Dosage: 125 MILLIGRAM, BID
     Route: 065
     Dates: start: 201903
  17. LEVETIRACETAM. [Suspect]
     Active Substance: LEVETIRACETAM
     Dosage: 500 MILLIGRAM, BID
     Route: 065
     Dates: start: 201806
  18. LEVETIRACETAM. [Suspect]
     Active Substance: LEVETIRACETAM
     Dosage: 250 MILLIGRAM, ONCE DAILY (QD)
     Route: 065
     Dates: start: 201903
  19. LEVETIRACETAM. [Suspect]
     Active Substance: LEVETIRACETAM
     Indication: EPILEPSY
     Dosage: 1000 MILLIGRAM, BID
     Route: 065
  20. LEVETIRACETAM. [Suspect]
     Active Substance: LEVETIRACETAM
     Dosage: 250 MILLIGRAM, BID
     Route: 065
     Dates: start: 201903
  21. BRIVIACT [Suspect]
     Active Substance: BRIVARACETAM
     Dosage: 20 MILLIGRAM, BID
     Route: 065
     Dates: start: 20180601
  22. BRIVIACT [Suspect]
     Active Substance: BRIVARACETAM
     Dosage: 75 MILLIGRAM, 2X/DAY (BID)
     Dates: start: 201808
  23. VALPROATE [Concomitant]
     Active Substance: VALPROIC ACID
     Indication: EPILEPSY
     Dosage: UNK
     Route: 065
  24. LEVETIRACETAM. [Suspect]
     Active Substance: LEVETIRACETAM
     Dosage: 500 MILLIGRAM, BID
     Route: 065
     Dates: start: 201805
  25. BRIVIACT [Suspect]
     Active Substance: BRIVARACETAM
     Dosage: UNK UNK, BID, 30MG AM AND 50MG PM, 2X/DAY (BID)
     Route: 065
     Dates: start: 201807
  26. LAMOTRIGINE. [Concomitant]
     Active Substance: LAMOTRIGINE
     Dosage: 200 MILLIGRAM, BID
     Route: 065

REACTIONS (6)
  - Seizure [Unknown]
  - Mood swings [Unknown]
  - Irritability [Unknown]
  - Dizziness [Unknown]
  - Off label use [Unknown]
  - Underdose [Unknown]

NARRATIVE: CASE EVENT DATE: 201805
